FAERS Safety Report 16790808 (Version 1)
Quarter: 2019Q3

REPORT INFORMATION
  Report Type: Spontaneous
  Country: KR (occurrence: KR)
  Receive Date: 20190910
  Receipt Date: 20190910
  Transmission Date: 20191005
  Serious: Yes (Other)
  Sender: FDA-Public Use
  Company Number: KR-TEVA-2019-KR-1107161

PATIENT
  Age: 70 Year
  Sex: Female

DRUGS (2)
  1. AZILECT [Suspect]
     Active Substance: RASAGILINE MESYLATE
     Indication: LUMBAR VERTEBRAL FRACTURE
     Dosage: 1.56 MILLIGRAM DAILY;
     Route: 065
     Dates: start: 20170701
  2. CLONAZEPAM. [Suspect]
     Active Substance: CLONAZEPAM
     Indication: LUMBAR VERTEBRAL FRACTURE
     Dosage: .5 MILLIGRAM DAILY;
     Route: 065
     Dates: start: 20170701

REACTIONS (3)
  - Neuropathy peripheral [Recovered/Resolved]
  - Depression [Recovered/Resolved]
  - Dizziness [Recovered/Resolved]

NARRATIVE: CASE EVENT DATE: 20170701
